FAERS Safety Report 13902574 (Version 1)
Quarter: 2017Q3

REPORT INFORMATION
  Report Type: Spontaneous
  Country: US (occurrence: US)
  Receive Date: 20170824
  Receipt Date: 20170824
  Transmission Date: 20171127
  Serious: No
  Sender: FDA-Public Use
  Company Number: US-ROCHE-1129757

PATIENT
  Sex: Female

DRUGS (12)
  1. HERCEPTIN [Suspect]
     Active Substance: TRASTUZUMAB
     Indication: BREAST CANCER
     Dosage: LOADING DOSE WAS 200 MG AND MAINTENANCE DOSE WAS 100 MG
     Route: 042
     Dates: start: 19990421
  2. BENADRYL [Concomitant]
     Active Substance: DIPHENHYDRAMINE HYDROCHLORIDE
     Route: 042
     Dates: start: 19990505
  3. ATIVAN [Concomitant]
     Active Substance: LORAZEPAM
     Route: 065
  4. HERCEPTIN [Suspect]
     Active Substance: TRASTUZUMAB
     Indication: METASTASES TO LUNG
     Route: 042
     Dates: start: 19990428
  5. DEXAMETHASON [Concomitant]
     Active Substance: DEXAMETHASONE
     Route: 042
     Dates: start: 19990505
  6. TAXOL [Concomitant]
     Active Substance: PACLITAXEL
     Route: 042
     Dates: start: 19990428
  7. BENADRYL [Concomitant]
     Active Substance: DIPHENHYDRAMINE HYDROCHLORIDE
     Route: 042
     Dates: start: 19990428
  8. HERCEPTIN [Suspect]
     Active Substance: TRASTUZUMAB
     Route: 042
     Dates: start: 19990505
  9. DEXAMETHASON [Concomitant]
     Active Substance: DEXAMETHASONE
     Route: 042
     Dates: start: 19990428
  10. TAGAMET [Concomitant]
     Active Substance: CIMETIDINE
     Route: 042
     Dates: start: 19990428
  11. TAGAMET [Concomitant]
     Active Substance: CIMETIDINE
     Route: 042
     Dates: start: 19990505
  12. ATIVAN [Concomitant]
     Active Substance: LORAZEPAM
     Route: 065
     Dates: start: 19990505

REACTIONS (1)
  - Diarrhoea [Unknown]
